FAERS Safety Report 12500702 (Version 3)
Quarter: 2016Q3

REPORT INFORMATION
  Report Type: Report from Study
  Country: US (occurrence: US)
  Receive Date: 20160627
  Receipt Date: 20160812
  Transmission Date: 20161109
  Serious: Yes (Hospitalization)
  Sender: FDA-Public Use
  Company Number: US-ACTELION-A-NJ2016-138284

PATIENT
  Age: 49 Year
  Sex: Female

DRUGS (4)
  1. TRACLEER [Suspect]
     Active Substance: BOSENTAN
     Indication: PULMONARY ARTERIAL HYPERTENSION
     Dosage: 125 MG, BID
     Route: 048
     Dates: start: 20080110
  2. COUMADIN [Concomitant]
     Active Substance: WARFARIN SODIUM
  3. IMURAN [Concomitant]
     Active Substance: AZATHIOPRINE
  4. PLAQUENIL [Concomitant]
     Active Substance: HYDROXYCHLOROQUINE SULFATE

REACTIONS (9)
  - Viral infection [Unknown]
  - Gastrointestinal haemorrhage [Unknown]
  - Cytomegalovirus colitis [Unknown]
  - Pulmonary hypertension [Unknown]
  - Respiratory failure [Unknown]
  - Thrombosis [Unknown]
  - Syncope [Unknown]
  - Asthenia [Unknown]
  - Treatment noncompliance [Unknown]
